FAERS Safety Report 5297224-0 (Version None)
Quarter: 2007Q2

REPORT INFORMATION
  Report Type: 
  Country: None (occurrence: None)
  Receive Date: 20070416
  Receipt Date: 20070404
  Transmission Date: 20071010
  Serious: Yes (Death, Other)
  Sender: FDA-Public Use
  Company Number: GB-JNJFOC-20070401206

PATIENT
  Sex: Female
  Weight: 70 kg

DRUGS (11)
  1. REMICADE [Suspect]
     Indication: RHEUMATOID ARTHRITIS
     Route: 042
  2. METHOTRAXATE [Concomitant]
  3. PREDNISOLONE [Concomitant]
  4. ALENDRONIC ACID [Concomitant]
  5. ATENOLOL [Concomitant]
  6. CALCICHEW [Concomitant]
  7. ETODOLAC [Concomitant]
  8. FOLIC ACID [Concomitant]
  9. RANITIDINE [Concomitant]
  10. RIFINAH [Concomitant]
  11. LEVOTHYROXINE SODIUM [Concomitant]

REACTIONS (1)
  - DEATH [None]
